FAERS Safety Report 6890222-2 (Version None)
Quarter: 2010Q3

REPORT INFORMATION
  Report Type: 
  Country: None (occurrence: None)
  Receive Date: 20100730
  Receipt Date: 20080927
  Transmission Date: 20110219
  Serious: No
  Sender: FDA-Public Use
  Company Number: US-PFIZER INC-2008076558

PATIENT
  Age: 54 Year
  Sex: Male
  Weight: 70.454 kg

DRUGS (1)
  1. LIPITOR [Suspect]

REACTIONS (1)
  - ASTHENIA [None]
